FAERS Safety Report 10467002 (Version 5)
Quarter: 2015Q1

REPORT INFORMATION
  Report Type: Report from Study
  Country: MY (occurrence: MY)
  Receive Date: 20140922
  Receipt Date: 20150213
  Transmission Date: 20150720
  Serious: Yes (Death, Hospitalization)
  Sender: FDA-Public Use
  Company Number: MY-B.I. PHARMACEUTICALS,INC./RIDGEFIELD-2013-BI-38509BI

PATIENT
  Age: 54 Year
  Sex: Male
  Weight: 63 kg

DRUGS (11)
  1. BI 10773 [Suspect]
     Active Substance: EMPAGLIFLOZIN
     Indication: TYPE 2 DIABETES MELLITUS
     Route: 048
     Dates: start: 20110511
  2. BI 10773 [Suspect]
     Active Substance: EMPAGLIFLOZIN
     Route: 048
     Dates: start: 20130910, end: 20131017
  3. DIAMICRON [Concomitant]
     Active Substance: GLICLAZIDE
     Indication: TYPE 2 DIABETES MELLITUS
     Dosage: 120 G
     Route: 048
     Dates: start: 2008
  4. LANTUS [Concomitant]
     Active Substance: INSULIN GLARGINE
     Indication: TYPE 2 DIABETES MELLITUS
     Dosage: 70 U
     Route: 058
     Dates: start: 2008
  5. LOVASTATIN. [Concomitant]
     Active Substance: LOVASTATIN
     Indication: DYSLIPIDAEMIA
     Dosage: 40 MG
     Route: 048
     Dates: start: 2008
  6. ISOPHANE INSULIN [Concomitant]
     Active Substance: INSULIN NOS
     Indication: TYPE 2 DIABETES MELLITUS
     Dosage: 80 G
     Route: 058
     Dates: start: 2008
  7. MONOVISC [Concomitant]
     Indication: OSTEOARTHRITIS
     Dosage: FORMULATION: FLUID, DAILY DOSE: 4CC
     Route: 014
     Dates: start: 201308
  8. NEURABOL [Concomitant]
     Indication: SUPPLEMENTATION THERAPY
     Dosage: 1 ANZ
     Route: 048
     Dates: start: 20130226, end: 20140320
  9. METFORMIN [Concomitant]
     Active Substance: METFORMIN HYDROCHLORIDE
     Indication: TYPE 2 DIABETES MELLITUS
     Dosage: 2550 G
     Route: 048
     Dates: start: 2008
  10. VALSARTAN. [Concomitant]
     Active Substance: VALSARTAN
     Indication: HYPERTENSION
     Dosage: 40 G
     Route: 048
     Dates: start: 20110906
  11. ASPIRIN. [Concomitant]
     Active Substance: ASPIRIN
     Indication: MYOCARDIAL ISCHAEMIA
     Dosage: 150 MG
     Route: 048
     Dates: start: 2008

REACTIONS (3)
  - Renal cell carcinoma [Unknown]
  - Renal cell carcinoma [Fatal]
  - Pleural effusion [Unknown]

NARRATIVE: CASE EVENT DATE: 20131014
